FAERS Safety Report 23232021 (Version 1)
Quarter: 2023Q4

REPORT INFORMATION
  Report Type: Spontaneous
  Country: CA (occurrence: CA)
  Receive Date: 20231127
  Receipt Date: 20231127
  Transmission Date: 20240110
  Serious: Yes (Hospitalization, Other)
  Sender: FDA-Public Use
  Company Number: CA-ANIPHARMA-2023-CA-003805

PATIENT
  Age: 43 Year
  Sex: Female
  Weight: 63 kg

DRUGS (8)
  1. CANDESARTAN CILEXETIL [Suspect]
     Active Substance: CANDESARTAN CILEXETIL
     Indication: Hypertension
     Route: 048
  2. SOMAVERT [Suspect]
     Active Substance: PEGVISOMANT
     Dosage: 10 MG DAILY
     Route: 058
     Dates: start: 2022
  3. MIRTAZAPINE [Concomitant]
     Active Substance: MIRTAZAPINE
     Route: 065
     Dates: start: 2020
  4. CANDESARTAN [Concomitant]
     Active Substance: CANDESARTAN
     Route: 065
  5. CITALOPRAM [Concomitant]
     Active Substance: CITALOPRAM HYDROBROMIDE
     Route: 065
  6. GLICLAZIDE [Concomitant]
     Active Substance: GLICLAZIDE
     Route: 065
  7. JARDIANCE [Concomitant]
     Active Substance: EMPAGLIFLOZIN
     Route: 065
  8. METFORMIN [Concomitant]
     Active Substance: METFORMIN HYDROCHLORIDE
     Route: 065

REACTIONS (31)
  - Neck pain [Unknown]
  - Nasopharyngitis [Unknown]
  - Injection site pain [Unknown]
  - Insulin-like growth factor increased [Unknown]
  - Frustration tolerance decreased [Unknown]
  - Depression [Unknown]
  - Urticaria [Unknown]
  - Amnesia [Unknown]
  - Rash [Unknown]
  - Malaise [Unknown]
  - Mental disorder [Not Recovered/Not Resolved]
  - Treatment noncompliance [Unknown]
  - Cough [Unknown]
  - Asthenia [Unknown]
  - Blood glucose abnormal [Unknown]
  - Affective disorder [Unknown]
  - Eating disorder [Unknown]
  - Loss of personal independence in daily activities [Unknown]
  - Central obesity [Unknown]
  - Weight increased [Unknown]
  - Blood growth hormone increased [Unknown]
  - Diabetes mellitus [Unknown]
  - Renal impairment [Unknown]
  - Drug ineffective [Unknown]
  - Off label use [Unknown]
  - Suicidal ideation [Unknown]
  - Intentional dose omission [Unknown]
  - Product dose omission issue [Unknown]
  - Headache [Unknown]
  - Fatigue [Unknown]
  - Injection site haemorrhage [Unknown]
